FAERS Safety Report 13926807 (Version 1)
Quarter: 2017Q3

REPORT INFORMATION
  Report Type: Spontaneous
  Country: US (occurrence: None)
  Receive Date: 20170831
  Receipt Date: 20170831
  Transmission Date: 20171127
  Serious: No
  Sender: FDA-Public Use
  Company Number: None

PATIENT
  Age: 59 Year
  Sex: Male

DRUGS (1)
  1. HUMIRA [Suspect]
     Active Substance: ADALIMUMAB
     Indication: SKIN DISORDER
     Route: 058
     Dates: start: 20170613, end: 20170730

REACTIONS (2)
  - Neuropathy peripheral [None]
  - Pneumonia [None]

NARRATIVE: CASE EVENT DATE: 20170703
